FAERS Safety Report 4415694-4 (Version None)
Quarter: 2004Q2

REPORT INFORMATION
  Report Type: 
  Country: None (occurrence: None)
  Receive Date: 20040630
  Receipt Date: 20040204
  Transmission Date: 20050107
  Serious: Yes (Other)
  Sender: FDA-Public Use
  Company Number: 2004009404

PATIENT

DRUGS (2)
  1. ZOLOFT [Suspect]
  2. OLANZAPINE [Concomitant]

REACTIONS (1)
  - STEVENS-JOHNSON SYNDROME [None]
